FAERS Safety Report 16802360 (Version 2)
Quarter: 2019Q4

REPORT INFORMATION
  Report Type: Spontaneous
  Country: US (occurrence: US)
  Receive Date: 20190912
  Receipt Date: 20191007
  Transmission Date: 20200122
  Serious: Yes (Death, Hospitalization, Other)
  Sender: FDA-Public Use
  Company Number: US-ACTELION-A-NJ2019-195160

PATIENT
  Age: 11 Month
  Sex: Male

DRUGS (20)
  1. VERSED [Concomitant]
     Active Substance: MIDAZOLAM HYDROCHLORIDE
     Dosage: 1 MG
  2. TYLENOL [Concomitant]
     Active Substance: ACETAMINOPHEN
  3. TRACLEER [Suspect]
     Active Substance: BOSENTAN
     Indication: PULMONARY ARTERIAL HYPERTENSION
     Dosage: 32 MG, BID
     Route: 048
     Dates: start: 20190419, end: 20190823
  4. OXYGEN. [Concomitant]
     Active Substance: OXYGEN
     Dosage: 0.5 L/MIN
     Route: 045
  5. LASIX [Concomitant]
     Active Substance: FUROSEMIDE
  6. FENTANYL. [Concomitant]
     Active Substance: FENTANYL
     Dosage: 15 MCG
  7. KETAMINE [Concomitant]
     Active Substance: KETAMINE
  8. PRECEDEX [Concomitant]
     Active Substance: DEXMEDETOMIDINE HYDROCHLORIDE
  9. AZITHROMYCIN ANHYDROUS. [Concomitant]
     Active Substance: AZITHROMYCIN ANHYDROUS
  10. VELETRI [Suspect]
     Active Substance: EPOPROSTENOL
     Dosage: 10 NG/KG, PER MIN
     Route: 042
  11. OXYGEN. [Concomitant]
     Active Substance: OXYGEN
     Dosage: 4 L
  12. METHYLPREDNISOLONE. [Concomitant]
     Active Substance: METHYLPREDNISOLONE
     Dosage: 2 MG/KG, Q12HRS
  13. FLUTICASONE. [Concomitant]
     Active Substance: FLUTICASONE
  14. VELETRI [Suspect]
     Active Substance: EPOPROSTENOL
     Dosage: 12 NG/KG, PER MIN
     Route: 042
  15. SILDENAFIL. [Suspect]
     Active Substance: SILDENAFIL
     Indication: PRODUCT USED FOR UNKNOWN INDICATION
     Route: 065
  16. VELETRI [Suspect]
     Active Substance: EPOPROSTENOL
     Dosage: 2 NG/KG, PER MIN
     Route: 042
  17. VELETRI [Suspect]
     Active Substance: EPOPROSTENOL
     Dosage: 6-9 NG/KG, PER MIN
     Route: 042
  18. VELETRI [Suspect]
     Active Substance: EPOPROSTENOL
     Dosage: 8 NG/KGM,PER MIN
     Route: 042
  19. VELETRI [Suspect]
     Active Substance: EPOPROSTENOL
     Indication: PULMONARY ARTERIAL HYPERTENSION
     Dosage: 1 NG/KG, PER MIN
     Route: 042
     Dates: end: 20190823
  20. VERSED [Concomitant]
     Active Substance: MIDAZOLAM HYDROCHLORIDE
     Dosage: BOLUS

REACTIONS (45)
  - Pulmonary hypertensive crisis [Fatal]
  - Von Willebrand^s disease [Unknown]
  - Therapeutic product effect decreased [Unknown]
  - Ventricular dysfunction [Unknown]
  - Sneezing [Unknown]
  - Pulmonary oedema [Unknown]
  - Nystagmus [Recovered/Resolved]
  - Pyrexia [Unknown]
  - Influenza [Unknown]
  - Right atrial dilatation [Unknown]
  - Pain [Unknown]
  - Epistaxis [Unknown]
  - Cardiac arrest [Fatal]
  - Agitation [Unknown]
  - Rhinorrhoea [Unknown]
  - Acidosis [Unknown]
  - Obliterative bronchiolitis [Unknown]
  - Cyanosis [Unknown]
  - Pulmonary valve incompetence [Unknown]
  - Near death experience [Unknown]
  - Loss of consciousness [Unknown]
  - Musculoskeletal stiffness [Unknown]
  - Rash [Unknown]
  - Catheter site irritation [Unknown]
  - Transposition of the great vessels [Fatal]
  - Oxygen saturation decreased [Unknown]
  - Seizure [Unknown]
  - Crying [Unknown]
  - Bradycardia [Unknown]
  - Thrombocytopenia [Unknown]
  - Left-to-right cardiac shunt [Unknown]
  - Heart rate decreased [Unknown]
  - Myalgia [Unknown]
  - Tidal volume decreased [Unknown]
  - Procalcitonin increased [Unknown]
  - Heart valve incompetence [Unknown]
  - Right ventricular dilatation [Unknown]
  - Eye movement disorder [Recovered/Resolved]
  - Condition aggravated [Unknown]
  - Congestive cardiomyopathy [Unknown]
  - Catheter placement [Unknown]
  - Paralysis [Unknown]
  - Wheezing [Unknown]
  - Cardiac dysfunction [Unknown]
  - Therapy non-responder [Unknown]

NARRATIVE: CASE EVENT DATE: 20190612
